FAERS Safety Report 18517085 (Version 2)
Quarter: 2021Q1

REPORT INFORMATION
  Report Type: Spontaneous
  Country: NL (occurrence: ES)
  Receive Date: 20201118
  Receipt Date: 20210112
  Transmission Date: 20210419
  Serious: Yes (Other)
  Sender: FDA-Public Use
  Company Number: ES-ASTELLAS-2020US039965

PATIENT
  Age: 60 Year
  Sex: Male

DRUGS (11)
  1. DEFLAZACORT [Concomitant]
     Active Substance: DEFLAZACORT
     Indication: PRODUCT USED FOR UNKNOWN INDICATION
     Route: 065
  2. NATECAL D [Concomitant]
     Active Substance: CALCIUM CARBONATE\CHOLECALCIFEROL
     Indication: PRODUCT USED FOR UNKNOWN INDICATION
     Route: 065
  3. LOSARTAN. [Concomitant]
     Active Substance: LOSARTAN
     Indication: PRODUCT USED FOR UNKNOWN INDICATION
     Route: 065
  4. CERTICAN [Concomitant]
     Active Substance: EVEROLIMUS
     Indication: LUNG TRANSPLANT
     Dosage: 0.5 MG, EVERY 12 HOURS
     Route: 065
  5. SEPTRIN [Concomitant]
     Active Substance: SULFAMETHOXAZOLE\TRIMETHOPRIM
     Indication: PRODUCT USED FOR UNKNOWN INDICATION
     Route: 065
  6. AMLODIPINE [Concomitant]
     Active Substance: AMLODIPINE BESYLATE
     Indication: PRODUCT USED FOR UNKNOWN INDICATION
     Route: 065
  7. PANTOPRAZOLE [Concomitant]
     Active Substance: PANTOPRAZOLE
     Indication: PRODUCT USED FOR UNKNOWN INDICATION
     Route: 065
  8. RISEDRONIC ACID [Concomitant]
     Active Substance: RISEDRONIC ACID
     Indication: PRODUCT USED FOR UNKNOWN INDICATION
     Route: 065
  9. ADVAGRAF [Suspect]
     Active Substance: TACROLIMUS
     Dosage: 1 MG, ONCE DAILY (EVERY 24 HOURS, FOR 3 YEARS)
     Route: 048
  10. ADVAGRAF [Suspect]
     Active Substance: TACROLIMUS
     Indication: LUNG TRANSPLANT
     Dosage: 6.5 MG, ONCE DAILY (EVERY 24 HOURS)
     Route: 048
  11. AZITHROMYCIN ANHYDROUS. [Concomitant]
     Active Substance: AZITHROMYCIN ANHYDROUS
     Indication: PRODUCT USED FOR UNKNOWN INDICATION
     Dosage: 750 MG, ONCE WEEKLY (3 TABLETS EVERY 7 DAYS)
     Route: 065

REACTIONS (3)
  - Sebaceous adenoma [Recovered/Resolved]
  - Rectal polyp [Recovered/Resolved]
  - Sebaceous carcinoma [Recovered/Resolved]
